FAERS Safety Report 6912309-8 (Version None)
Quarter: 2010Q3

REPORT INFORMATION
  Report Type: 
  Country: None (occurrence: None)
  Receive Date: 20100806
  Receipt Date: 20080228
  Transmission Date: 20110219
  Serious: No
  Sender: FDA-Public Use
  Company Number: US-PFIZER INC-2008018822

PATIENT

DRUGS (3)
  1. VFEND [Suspect]
  2. CYCLOSPORINE [Suspect]
  3. RIFAMPIN [Concomitant]

REACTIONS (1)
  - IMMUNOSUPPRESSANT DRUG LEVEL INCREASED [None]
